FAERS Safety Report 7907435-0 (Version None)
Quarter: 2011Q4

REPORT INFORMATION
  Report Type: 
  Country: None (occurrence: None)
  Receive Date: 20111110
  Receipt Date: 20111102
  Transmission Date: 20120403
  Serious: Yes (Hospitalization)
  Sender: FDA-Public Use
  Company Number: FR-BAYER-2011-095853

PATIENT
  Age: 65 Year
  Sex: Male

DRUGS (1)
  1. MOXIFLOXACIN HCL [Suspect]
     Indication: BRONCHITIS
     Dosage: UNK
     Dates: start: 20110930, end: 20111003

REACTIONS (3)
  - VISION BLURRED [None]
  - DIPLOPIA [None]
  - HEADACHE [None]
